FAERS Safety Report 5881825-2 (Version None)
Quarter: 2008Q3

REPORT INFORMATION
  Report Type: 
  Country: None (occurrence: None)
  Receive Date: 20080912
  Receipt Date: 20080805
  Transmission Date: 20090109
  Serious: No
  Sender: FDA-Public Use
  Company Number: US-ABBOTT-08P-163-0462458-00

PATIENT
  Sex: Female
  Weight: 104.42 kg

DRUGS (5)
  1. HUMIRA [Suspect]
     Indication: ANKYLOSING SPONDYLITIS
     Route: 058
     Dates: start: 20080201
  2. METOPROLOL TARTRATE [Concomitant]
     Indication: HYPERTENSION
     Route: 048
     Dates: start: 20040101
  3. VALIUM [Concomitant]
     Indication: DRUG USE FOR UNKNOWN INDICATION
     Dosage: 10 MG AT BED TIME, AS NEEDED
     Route: 048
     Dates: start: 20020101
  4. DICLOFENAC DIETHYLAMINE [Concomitant]
     Indication: ARTHRITIS
     Dosage: 60 MG OR 100 MG AS NEEDED
     Route: 048
     Dates: start: 20060101
  5. DEXTROPROPOXYPHENE HYDROCHLORIDE [Concomitant]
     Indication: PAIN
     Dosage: 64 MG, 1-2 TABS AS NEEDED
     Route: 048

REACTIONS (6)
  - DEPRESSED MOOD [None]
  - FATIGUE [None]
  - HOT FLUSH [None]
  - INFLUENZA LIKE ILLNESS [None]
  - INJECTION SITE IRRITATION [None]
  - INJECTION SITE PAIN [None]
